FAERS Safety Report 7238344-0 (Version None)
Quarter: 2011Q1

REPORT INFORMATION
  Report Type: 
  Country: None (occurrence: None)
  Receive Date: 20110121
  Receipt Date: 20110117
  Transmission Date: 20110831
  Serious: Yes (Life-Threatening)
  Sender: FDA-Public Use
  Company Number: FR-ASTRAZENECA-2011SE02817

PATIENT
  Age: 39 Year
  Sex: Male

DRUGS (8)
  1. KETALAR [Suspect]
     Indication: ANAESTHESIA
     Route: 042
  2. SUCCINYLCHOLINE CHLORIDE [Suspect]
     Indication: ANAESTHESIA
     Route: 042
     Dates: start: 20100511, end: 20100511
  3. ACUPAN [Suspect]
     Route: 042
  4. AUGMENTIN '125' [Suspect]
     Indication: ANTIBIOTIC PROPHYLAXIS
     Route: 050
     Dates: start: 20100511, end: 20100511
  5. DIPRIVAN [Suspect]
     Indication: ANAESTHESIA
     Route: 042
     Dates: start: 20100511, end: 20100511
  6. SUFENTA PRESERVATIVE FREE [Suspect]
     Indication: ANAESTHESIA
     Route: 042
     Dates: start: 20100511, end: 20100511
  7. PERFALGAN [Suspect]
     Route: 042
  8. HYPNOVEL [Suspect]
     Indication: ANAESTHESIA
     Route: 042
     Dates: start: 20100511, end: 20100511

REACTIONS (2)
  - ANAPHYLACTIC SHOCK [None]
  - GENERALISED ERYTHEMA [None]
